FAERS Safety Report 11158249 (Version 1)
Quarter: 2015Q2

REPORT INFORMATION
  Report Type: Spontaneous
  Country: AU (occurrence: AU)
  Receive Date: 20150603
  Receipt Date: 20150603
  Transmission Date: 20150821
  Serious: Yes (Other)
  Sender: FDA-Public Use
  Company Number: AU-AMGEN-AUSSP2015053299

PATIENT
  Age: 34 Year
  Sex: Male

DRUGS (1)
  1. ENBREL [Suspect]
     Active Substance: ETANERCEPT
     Indication: ANKYLOSING SPONDYLITIS
     Dosage: UNK
     Route: 065

REACTIONS (5)
  - Condition aggravated [Unknown]
  - Pain [Unknown]
  - Ankylosing spondylitis [Unknown]
  - Discomfort [Unknown]
  - Musculoskeletal stiffness [Unknown]
